FAERS Safety Report 4785272-6 (Version None)
Quarter: 2005Q3

REPORT INFORMATION
  Report Type: 
  Country: None (occurrence: None)
  Receive Date: 20050929
  Receipt Date: 20050913
  Transmission Date: 20060218
  Serious: Yes (Other)
  Sender: FDA-Public Use
  Company Number: 217744

PATIENT
  Age: 45 Year
  Sex: Male

DRUGS (1)
  1. SOMATROPIN (SOMATROPIN) POWDER FOR INJECTION [Suspect]
     Indication: DRUG USE FOR UNKNOWN INDICATION
     Dosage: 0.25 IU/KG, 1/WEEK

REACTIONS (10)
  - ALBUMIN URINE PRESENT [None]
  - AREFLEXIA [None]
  - BLOOD CREATINE PHOSPHOKINASE INCREASED [None]
  - BLOOD GROWTH HORMONE DECREASED [None]
  - CARPAL TUNNEL SYNDROME [None]
  - DYSAESTHESIA [None]
  - HYPOAESTHESIA [None]
  - NERVE COMPRESSION [None]
  - NEUROPATHY PERIPHERAL [None]
  - PARAESTHESIA [None]
